FAERS Safety Report 6663813-1 (Version None)
Quarter: 2010Q2

REPORT INFORMATION
  Report Type: 
  Country: None (occurrence: None)
  Receive Date: 20100401
  Receipt Date: 20100326
  Transmission Date: 20101027
  Serious: Yes (Hospitalization, Other)
  Sender: FDA-Public Use
  Company Number: RU-ASTRAZENECA-2009SE02440

PATIENT
  Age: 33 Year
  Sex: Female
  Weight: 70.4 kg

DRUGS (24)
  1. MARCAIN SPINAL HEAVY [Suspect]
     Indication: SPINAL ANAESTHESIA
     Dosage: 3 ML (15 MG)
     Route: 037
     Dates: start: 20090531, end: 20090531
  2. RELANIUM (DIAZEPAM) [Concomitant]
     Indication: DELIVERY
     Route: 030
     Dates: start: 20090529, end: 20090529
  3. RELANIUM (DIAZEPAM) [Concomitant]
     Route: 030
     Dates: start: 20090529, end: 20090530
  4. BARALGIN (METAMIZOLE) [Concomitant]
     Indication: DELIVERY
     Route: 030
     Dates: start: 20090529, end: 20090529
  5. COCARBOXYLASE [Concomitant]
     Indication: DELIVERY
     Dates: start: 20090530, end: 20090530
  6. COCARBOXYLASE [Concomitant]
     Route: 042
     Dates: start: 20090530, end: 20090531
  7. OXYTOCIN [Concomitant]
     Indication: DELIVERY
     Route: 042
     Dates: start: 20090530, end: 20090530
  8. OXYTOCIN [Concomitant]
     Indication: LABOUR STIMULATION
     Route: 042
     Dates: start: 20090530, end: 20090530
  9. OXYTOCIN [Concomitant]
     Dosage: 5 UNITS
     Route: 042
     Dates: start: 20090531, end: 20090531
  10. OXYTOCIN [Concomitant]
     Dosage: 5 UNITS
     Route: 042
     Dates: start: 20090531, end: 20090531
  11. SYNESTROL [Concomitant]
     Indication: LABOUR STIMULATION
     Route: 042
     Dates: start: 20090531, end: 20090531
  12. GLUCOSE [Concomitant]
     Indication: LABOUR STIMULATION
     Route: 042
     Dates: start: 20090531, end: 20090531
  13. GLUCOSE [Concomitant]
     Route: 042
     Dates: start: 20090531, end: 20090531
  14. GLUCOSE [Concomitant]
     Route: 042
     Dates: start: 20090531, end: 20090531
  15. GLUCOSE [Concomitant]
     Route: 042
     Dates: start: 20090531, end: 20090531
  16. GLUCOSE [Concomitant]
     Route: 042
     Dates: start: 20090531, end: 20090531
  17. CALCIUM CHLORIDE [Concomitant]
     Indication: LABOUR STIMULATION
     Route: 042
     Dates: start: 20090531, end: 20090531
  18. VITAMIN B1 TAB [Concomitant]
     Indication: LABOUR STIMULATION
     Route: 030
     Dates: start: 20090531, end: 20090531
  19. VITAMIN B6 [Concomitant]
     Indication: LABOUR STIMULATION
     Route: 030
     Dates: start: 20090531, end: 20090531
  20. ASCORBIC ACID [Concomitant]
     Indication: LABOUR STIMULATION
     Route: 042
     Dates: start: 20090531, end: 20090531
  21. ATROPINE SULFATE [Concomitant]
     Indication: PREMEDICATION
     Route: 030
     Dates: start: 20090531, end: 20090531
  22. SODIUM BICARBONATE [Concomitant]
     Route: 042
     Dates: start: 20090531, end: 20090531
  23. ENZAPROST [Concomitant]
     Indication: LABOUR STIMULATION
     Route: 042
     Dates: start: 20090531, end: 20090531
  24. DROTAVERINE [Concomitant]
     Route: 030
     Dates: start: 20090531, end: 20090531

REACTIONS (3)
  - BLOOD PRESSURE DECREASED [None]
  - INTRA-UTERINE DEATH [None]
  - LOSS OF CONSCIOUSNESS [None]
